FAERS Safety Report 6185930-5 (Version None)
Quarter: 2009Q2

REPORT INFORMATION
  Report Type: 
  Country: None (occurrence: None)
  Receive Date: 20090511
  Receipt Date: 20090502
  Transmission Date: 20091009
  Serious: Yes (Other)
  Sender: FDA-Public Use
  Company Number: US-PFIZER INC-2009207202

PATIENT

DRUGS (1)
  1. LIPITOR [Suspect]

REACTIONS (1)
  - MENTAL STATUS CHANGES [None]
